FAERS Safety Report 11289800 (Version 3)
Quarter: 2016Q2

REPORT INFORMATION
  Report Type: Spontaneous
  Country: US (occurrence: US)
  Receive Date: 20150721
  Receipt Date: 20160502
  Transmission Date: 20160815
  Serious: No
  Sender: FDA-Public Use
  Company Number: US-PFIZER INC-2015238993

PATIENT
  Age: 52 Year
  Sex: Female
  Weight: 77.11 kg

DRUGS (1)
  1. GABAPENTIN. [Suspect]
     Active Substance: GABAPENTIN
     Indication: NEUROPATHY PERIPHERAL
     Dosage: 100 MG, 3X/DAY (THREE 100MG CAPSULES PER DAY, BY MOUTH)
     Route: 048
     Dates: start: 2015, end: 2015

REACTIONS (9)
  - Confusional state [Recovered/Resolved]
  - Memory impairment [Recovered/Resolved]
  - Hostility [Recovered/Resolved]
  - Drug hypersensitivity [Recovered/Resolved]
  - Anger [Recovered/Resolved]
  - Abnormal behaviour [Recovered/Resolved]
  - Product use issue [Unknown]
  - Drug intolerance [Recovered/Resolved]
  - Aggression [Recovered/Resolved]

NARRATIVE: CASE EVENT DATE: 2015
